FAERS Safety Report 8470940-5 (Version None)
Quarter: 2012Q2

REPORT INFORMATION
  Report Type: 
  Country: None (occurrence: None)
  Receive Date: 20120323
  Receipt Date: 20111104
  Transmission Date: 20120825
  Serious: Yes (Other)
  Sender: FDA-Public Use
  Company Number: 163-21880-11082760

PATIENT
  Age: 68 Year
  Sex: Female
  Weight: 150 kg

DRUGS (3)
  1. VELCADE [Concomitant]
  2. REVLIMID [Suspect]
     Indication: MULTIPLE MYELOMA
     Dosage: 25 MG, DAILY X 21 DAYS, 7 DAYS OFF, PO; 20 MG, DAILY X 21 DAYS, PO
     Route: 048
     Dates: start: 20110804
  3. REVLIMID [Suspect]
     Indication: MULTIPLE MYELOMA
     Dosage: 25 MG, DAILY X 21 DAYS, 7 DAYS OFF, PO; 20 MG, DAILY X 21 DAYS, PO
     Route: 048
     Dates: start: 20110805, end: 20110822

REACTIONS (7)
  - FATIGUE [None]
  - BONE MARROW FAILURE [None]
  - CHILLS [None]
  - ASTHENIA [None]
  - DEHYDRATION [None]
  - RENAL IMPAIRMENT [None]
  - HEADACHE [None]
